FAERS Safety Report 24200131 (Version 1)
Quarter: 2024Q3

REPORT INFORMATION
  Report Type: Spontaneous
  Country: US (occurrence: US)
  Receive Date: 20240812
  Receipt Date: 20240812
  Transmission Date: 20241016
  Serious: Yes (Other)
  Sender: ALVOGEN
  Company Number: None

PATIENT

DRUGS (1)
  1. LISDEXAMFETAMINE [Suspect]
     Active Substance: LISDEXAMFETAMINE
     Indication: Product used for unknown indication
     Dosage: STRENGTH: 30 MG CAPSULE

REACTIONS (5)
  - Loss of consciousness [Unknown]
  - Speech disorder [Unknown]
  - Somnolence [Unknown]
  - Therapeutic response changed [Unknown]
  - Product substitution issue [Unknown]
